FAERS Safety Report 16519725 (Version 2)
Quarter: 2019Q3

REPORT INFORMATION
  Report Type: Spontaneous
  Country: DE (occurrence: DE)
  Receive Date: 20190702
  Receipt Date: 20190715
  Transmission Date: 20191004
  Serious: Yes (Hospitalization)
  Sender: FDA-Public Use
  Company Number: PHHY2019DE150197

PATIENT
  Sex: Female

DRUGS (1)
  1. FLUORESCEIN SODIUM. [Suspect]
     Active Substance: FLUORESCEIN SODIUM
     Indication: ELECTROCOAGULATION
     Route: 045

REACTIONS (7)
  - Peripheral vascular disorder [Unknown]
  - Product quality issue [Unknown]
  - Pain [Unknown]
  - Abdominal pain [Unknown]
  - Visual impairment [Unknown]
  - Ocular hyperaemia [Unknown]
  - Muscle spasms [Unknown]
